FAERS Safety Report 15192093 (Version 1)
Quarter: 2018Q3

REPORT INFORMATION
  Report Type: Spontaneous
  Country: US (occurrence: US)
  Receive Date: 20180625
  Receipt Date: 20180625
  Transmission Date: 20181010
  Serious: No
  Sender: FDA-Public Use
  Company Number: None

PATIENT
  Age: 58 Year
  Sex: Female

DRUGS (1)
  1. TRACLEER [Suspect]
     Active Substance: BOSENTAN
     Route: 048
     Dates: start: 20141209

REACTIONS (4)
  - Sinusitis [None]
  - Back pain [None]
  - Bronchitis [None]
  - Chest discomfort [None]

NARRATIVE: CASE EVENT DATE: 20180618
